FAERS Safety Report 10339442 (Version 1)
Quarter: 2014Q3

REPORT INFORMATION
  Report Type: Spontaneous
  Country: US (occurrence: US)
  Receive Date: 20140724
  Receipt Date: 20140724
  Transmission Date: 20150326
  Serious: Yes (Other)
  Sender: FDA-Public Use
  Company Number: US-TEVA-461785USA

PATIENT
  Sex: Female

DRUGS (2)
  1. XARELTO [Concomitant]
     Active Substance: RIVAROXABAN
  2. ZEBETA [Suspect]
     Active Substance: BISOPROLOL FUMARATE
     Indication: ATRIAL FIBRILLATION

REACTIONS (5)
  - Joint swelling [Unknown]
  - Heart rate decreased [Unknown]
  - Bronchitis [Recovered/Resolved]
  - Sluggishness [Unknown]
  - Weight loss poor [Unknown]

NARRATIVE: CASE EVENT DATE: 201312
